FAERS Safety Report 19036713 (Version 1)
Quarter: 2021Q1

REPORT INFORMATION
  Report Type: Spontaneous
  Country: US (occurrence: US)
  Receive Date: 20210321
  Receipt Date: 20210321
  Transmission Date: 20210420
  Serious: Yes (Other)
  Sender: FDA-Public Use
  Company Number: None

PATIENT
  Age: 42 Year
  Sex: Female

DRUGS (1)
  1. STELARA [Suspect]
     Active Substance: USTEKINUMAB
     Indication: CROHN^S DISEASE
     Dosage: ?          QUANTITY:1 ML MILLILITRE(S);OTHER FREQUENCY:EVERY 8 WEEKS ;?
     Route: 058
     Dates: start: 20190513

REACTIONS (3)
  - Nausea [None]
  - Injection site pain [None]
  - Vomiting [None]

NARRATIVE: CASE EVENT DATE: 20210204
